FAERS Safety Report 19959863 (Version 1)
Quarter: 2021Q4

REPORT INFORMATION
  Report Type: Spontaneous
  Country: DE (occurrence: DE)
  Receive Date: 20211015
  Receipt Date: 20211015
  Transmission Date: 20220303
  Serious: Yes (Other)
  Sender: FDA-Public Use
  Company Number: DE-NOVARTISPH-NVSC2021DE234719

PATIENT
  Age: 43 Year
  Sex: Female

DRUGS (1)
  1. ADALIMUMAB [Suspect]
     Active Substance: ADALIMUMAB
     Indication: Crohn^s disease
     Dosage: 40 MG, BIW
     Route: 058

REACTIONS (3)
  - Dyspnoea exertional [Recovering/Resolving]
  - Laryngitis [Recovering/Resolving]
  - Dysphonia [Recovering/Resolving]
